FAERS Safety Report 7806535-3 (Version None)
Quarter: 2011Q4

REPORT INFORMATION
  Report Type: 
  Country: None (occurrence: None)
  Receive Date: 20111011
  Receipt Date: 20110926
  Transmission Date: 20120403
  Serious: Yes (Life-Threatening)
  Sender: FDA-Public Use
  Company Number: GB-TYCO HEALTHCARE/MALLINCKRODT-T201101129

PATIENT
  Age: 58 Year
  Sex: Female

DRUGS (1)
  1. OPTIRAY 160 [Suspect]
     Indication: SCAN WITH CONTRAST
     Dosage: UNK UNK, SINGLE
     Route: 042
     Dates: start: 20110215, end: 20110215

REACTIONS (5)
  - BRONCHOSPASM [None]
  - URTICARIA [None]
  - DYSPNOEA [None]
  - SNEEZING [None]
  - THROAT TIGHTNESS [None]
